FAERS Safety Report 5072182-2 (Version None)
Quarter: 2006Q3

REPORT INFORMATION
  Report Type: 
  Country: None (occurrence: None)
  Receive Date: 20060801
  Receipt Date: 20060719
  Transmission Date: 20061208
  Serious: Yes (Other)
  Sender: FDA-Public Use
  Company Number: 2006089301

PATIENT
  Age: 59 Year
  Sex: Male

DRUGS (8)
  1. FLAGYL I.V. [Suspect]
     Indication: INFECTION
     Dosage: INTRAVENOUS
     Route: 042
     Dates: start: 20060524, end: 20060530
  2. FLAGYL [Suspect]
     Indication: INFECTION
     Dosage: ORAL
     Route: 048
     Dates: start: 20060601, end: 20060610
  3. ZETIA [Concomitant]
  4. CRESTOR [Concomitant]
  5. CARDIAZEM (DILTIAZEM HYDROCHLORIDE) [Concomitant]
  6. PLAVIX [Concomitant]
  7. NEXIUM [Concomitant]
  8. AMBIEN [Concomitant]

REACTIONS (3)
  - HYPERACUSIS [None]
  - PARAESTHESIA [None]
  - PHOTOSENSITIVITY REACTION [None]
